FAERS Safety Report 6176246-1 (Version None)
Quarter: 2009Q2

REPORT INFORMATION
  Report Type: 
  Country: None (occurrence: None)
  Receive Date: 20090501
  Receipt Date: 20090501
  Transmission Date: 20091009
  Serious: Yes (Congenital Anomaly)
  Sender: FDA-Public Use
  Company Number: B0555546A

PATIENT
  Sex: Female

DRUGS (6)
  1. COMBIVIR [Suspect]
     Indication: ANTIVIRAL TREATMENT
     Dosage: 100MG PER DAY
     Dates: start: 20010101
  2. ATAZANAVIR SULFATE [Suspect]
     Indication: ANTIVIRAL TREATMENT
     Dosage: 300MG PER DAY
     Dates: start: 20010101
  3. DAPSONE [Suspect]
     Indication: ANTIVIRAL TREATMENT
     Dosage: 100MG PER DAY
     Dates: start: 20010101
  4. RITONAVIR [Suspect]
     Indication: ANTIVIRAL TREATMENT
     Dosage: 100MG PER DAY
     Dates: start: 20010101
  5. TENOFOVIR [Suspect]
     Indication: ANTIVIRAL TREATMENT
     Dosage: 300MG PER DAY
     Dates: start: 20010101
  6. ASASANTIN RETARD [Concomitant]
     Indication: ANTIVIRAL TREATMENT

REACTIONS (2)
  - CONGENITAL HYDROCEPHALUS [None]
  - DRUG EXPOSURE DURING PREGNANCY [None]
